FAERS Safety Report 9427908 (Version 1)
Quarter: 2013Q3

REPORT INFORMATION
  Report Type: Spontaneous
  Country: FR (occurrence: FR)
  Receive Date: 20130730
  Receipt Date: 20130730
  Transmission Date: 20140515
  Serious: Yes (Death, Hospitalization, Other)
  Sender: FDA-Public Use
  Company Number: FR-PFIZER INC-2013217864

PATIENT
  Age: 54 Year
  Sex: Male

DRUGS (13)
  1. LYRICA [Suspect]
     Dosage: UNK
     Route: 048
     Dates: start: 20130606, end: 20130704
  2. LASILIX [Concomitant]
     Indication: RENAL FAILURE CHRONIC
     Dosage: 1 DF, 1X/DAY
  3. UVEDOSE [Concomitant]
     Indication: RENAL FAILURE CHRONIC
     Dosage: 100000 IU, MONTHLY
  4. CALPEROS [Concomitant]
     Indication: RENAL FAILURE CHRONIC
     Dosage: 1000 MG, 2X/DAY
     Route: 048
  5. LEVEMIR FLEXPEN [Concomitant]
     Indication: TYPE 2 DIABETES MELLITUS
     Dosage: 22 UI AT NOON AND 12 IU IN THE EVENING
  6. NOVORAPID [Concomitant]
     Indication: TYPE 2 DIABETES MELLITUS
     Dosage: 3 IU, 2X/DAY
  7. TEMERIT [Concomitant]
     Dosage: 5 MG, 2 DF IN MORNINGS
     Dates: end: 20130612
  8. TRIATEC [Concomitant]
     Dosage: 5 MG, 1X/DAY
     Dates: end: 20130607
  9. KARDEGIC [Concomitant]
     Dosage: UNK
     Dates: end: 20130608
  10. EUPANTOL [Concomitant]
     Dosage: 20 MG, 1X/DAY
     Dates: end: 20130627
  11. PIPERACILLIN/TAZOBACTAM [Concomitant]
     Dosage: UNK
     Dates: start: 20130525, end: 20130607
  12. MEROPENEM [Concomitant]
     Dosage: UNK
     Dates: start: 20130607, end: 20130622
  13. CIPROFLOXACIN [Concomitant]
     Dosage: UNK
     Dates: start: 20130607, end: 20130622

REACTIONS (2)
  - Cardio-respiratory arrest [Fatal]
  - Cholestasis [Recovering/Resolving]
